FAERS Safety Report 13839528 (Version 1)
Quarter: 2017Q3

REPORT INFORMATION
  Report Type: Spontaneous
  Country: US (occurrence: US)
  Receive Date: 20170805
  Receipt Date: 20170805
  Transmission Date: 20171127
  Serious: No
  Sender: FDA-Public Use
  Company Number: None

PATIENT
  Age: 42 Year
  Sex: Female

DRUGS (6)
  1. ACYCLOVIR. [Concomitant]
     Active Substance: ACYCLOVIR
  2. CYCLOBENZAPRINE. [Concomitant]
     Active Substance: CYCLOBENZAPRINE
  3. MULTIHANCE [Suspect]
     Active Substance: GADOBENATE DIMEGLUMINE
     Indication: NUCLEAR MAGNETIC RESONANCE IMAGING
     Route: 042
     Dates: start: 20170110, end: 20170110
  4. CLONAZEPAM. [Concomitant]
     Active Substance: CLONAZEPAM
  5. GADOBENATE [Concomitant]
     Active Substance: GADOBENATE DIMEGLUMINE
  6. DIMEGLUMINE (MULTIHANCE) [Concomitant]

REACTIONS (8)
  - Hypotension [None]
  - Nausea [None]
  - Tremor [None]
  - Dyspnoea [None]
  - Lip swelling [None]
  - Cough [None]
  - Flushing [None]
  - Hypoxia [None]

NARRATIVE: CASE EVENT DATE: 20170110
